FAERS Safety Report 7816099-6 (Version None)
Quarter: 2011Q4

REPORT INFORMATION
  Report Type: 
  Country: None (occurrence: None)
  Receive Date: 20111015
  Receipt Date: 20111005
  Transmission Date: 20120403
  Serious: Yes (Hospitalization)
  Sender: FDA-Public Use
  Company Number: US-ASTRAZENECA-2010SE42203

PATIENT
  Age: 53 Year
  Sex: Female

DRUGS (6)
  1. PRESTIQUE [Concomitant]
  2. SYMBICORT [Suspect]
     Indication: CHRONIC OBSTRUCTIVE PULMONARY DISEASE
     Dosage: 160/4.5 MCG 2 PUFFS BID
     Route: 055
     Dates: start: 20050101
  3. SYMBICORT [Suspect]
     Indication: ASTHMA
     Dosage: 160/4.5 MCG 2 PUFFS BID
     Route: 055
     Dates: start: 20050101
  4. NEXIUM [Suspect]
     Route: 048
  5. ALBUTEROL [Concomitant]
  6. XANAX [Concomitant]

REACTIONS (9)
  - MENTAL DISORDER [None]
  - COUGH [None]
  - DYSPNOEA [None]
  - DRUG DOSE OMISSION [None]
  - SLEEP DISORDER DUE TO GENERAL MEDICAL CONDITION, INSOMNIA TYPE [None]
  - PANIC ATTACK [None]
  - INFLUENZA [None]
  - MALAISE [None]
  - PNEUMONIA [None]
